FAERS Safety Report 25704603 (Version 1)
Quarter: 2025Q3

REPORT INFORMATION
  Report Type: Spontaneous
  Country: US (occurrence: US)
  Receive Date: 20250820
  Receipt Date: 20250820
  Transmission Date: 20251020
  Serious: Yes (Other)
  Sender: ACCORD
  Company Number: US-MLMSERVICE-20240403-PI009605-00152-1

PATIENT
  Age: 49 Year
  Sex: Male

DRUGS (3)
  1. FLUOROURACIL [Suspect]
     Active Substance: FLUOROURACIL
     Indication: Colon cancer
  2. LEUCOVORIN [Concomitant]
     Active Substance: LEUCOVORIN\LEUCOVORIN CALCIUM
     Indication: Colon cancer
  3. OXALIPLATIN [Concomitant]
     Active Substance: OXALIPLATIN
     Indication: Colon cancer

REACTIONS (4)
  - Myocardial injury [Recovered/Resolved]
  - Cardiomyopathy acute [Recovered/Resolved]
  - Atrial fibrillation [Recovered/Resolved]
  - Heart failure with reduced ejection fraction [Recovered/Resolved]
